FAERS Safety Report 24794932 (Version 1)
Quarter: 2024Q4

REPORT INFORMATION
  Report Type: Spontaneous
  Country: US (occurrence: None)
  Receive Date: 20241231
  Receipt Date: 20241231
  Transmission Date: 20250115
  Serious: No
  Sender: Public
  Company Number: None

PATIENT
  Age: 35 Year
  Sex: Male

DRUGS (1)
  1. DUPIXENT [Suspect]
     Active Substance: DUPILUMAB
     Indication: Hypereosinophilic syndrome
     Dosage: 300 MG EVERY 7 DAYS SUBCUTANEOUS?
     Route: 058
     Dates: start: 20230701, end: 20240313

REACTIONS (4)
  - Skin lesion [None]
  - Pain of skin [None]
  - Erythema nodosum [None]
  - Therapy cessation [None]

NARRATIVE: CASE EVENT DATE: 20240313
